FAERS Safety Report 4582925-X (Version None)
Quarter: 2005Q1

REPORT INFORMATION
  Report Type: 
  Country: None (occurrence: None)
  Receive Date: 20050215
  Receipt Date: 20041129
  Transmission Date: 20050727
  Serious: Yes (Hospitalization)
  Sender: FDA-Public Use
  Company Number: PHFR2004GB04436

PATIENT
  Age: 45 Year
  Sex: Male

DRUGS (3)
  1. ANDREWS LIVER SALT [Suspect]
     Route: 048
     Dates: end: 20041117
  2. FRUSEMIDE [Concomitant]
  3. CLOZARIL [Suspect]
     Indication: SCHIZOPHRENIA
     Dosage: UNK, UNK
     Dates: start: 20040506

REACTIONS (7)
  - CONVULSION [None]
  - DRUG LEVEL DECREASED [None]
  - DRUG LEVEL INCREASED [None]
  - FEELING ABNORMAL [None]
  - OEDEMA PERIPHERAL [None]
  - OVERDOSE [None]
  - TREATMENT NONCOMPLIANCE [None]
